FAERS Safety Report 15232608 (Version 1)
Quarter: 2018Q3

REPORT INFORMATION
  Report Type: Spontaneous
  Country: KR (occurrence: KR)
  Receive Date: 20180802
  Receipt Date: 20180802
  Transmission Date: 20181010
  Serious: Yes (Death, Other)
  Sender: FDA-Public Use
  Company Number: KR-BAYER-2018-137068

PATIENT
  Age: 70 Year
  Sex: Female

DRUGS (7)
  1. NEXAVAR [Suspect]
     Active Substance: SORAFENIB
     Indication: THYROID CANCER METASTATIC
     Dosage: DAILY DOSE 600 MG
     Dates: start: 201507, end: 201507
  2. NEXAVAR [Suspect]
     Active Substance: SORAFENIB
     Indication: THYROID CANCER METASTATIC
     Dosage: DAILY DOSE 800 MG
     Dates: start: 201507
  3. LENVATINIB [Concomitant]
     Active Substance: LENVATINIB
     Dosage: 20 MG START
     Dates: start: 201703
  4. NEXAVAR [Suspect]
     Active Substance: SORAFENIB
     Indication: THYROID CANCER METASTATIC
     Dosage: 800 MG DAILY
     Dates: start: 201411, end: 201501
  5. NEXAVAR [Suspect]
     Active Substance: SORAFENIB
     Indication: THYROID CANCER METASTATIC
     Dosage: DAILY DOSE 800 MG
     Dates: start: 201701
  6. LENVATINIB [Concomitant]
     Active Substance: LENVATINIB
     Dosage: 14 MG
     Dates: start: 2017
  7. NEXAVAR [Suspect]
     Active Substance: SORAFENIB
     Indication: THYROID CANCER METASTATIC
     Dosage: DAILY DOSE 400 MG
     Dates: start: 201501, end: 2015

REACTIONS (30)
  - Death [Fatal]
  - Muscle disorder [None]
  - Hydrothorax [None]
  - Decreased appetite [None]
  - Arthralgia [None]
  - Decreased appetite [None]
  - Purpura [None]
  - Palmar-plantar erythrodysaesthesia syndrome [None]
  - Diarrhoea [None]
  - Palmar-plantar erythrodysaesthesia syndrome [None]
  - Asthenia [None]
  - Palmar-plantar erythrodysaesthesia syndrome [None]
  - Pneumatosis intestinalis [None]
  - Palmar-plantar erythrodysaesthesia syndrome [None]
  - Arthralgia [None]
  - Palmar-plantar erythrodysaesthesia syndrome [None]
  - Hypertension [None]
  - Diarrhoea [None]
  - Asthenia [None]
  - Alopecia [None]
  - Metastases to bone [None]
  - Thyroid cancer metastatic [None]
  - Thrombocytopenia [None]
  - Rash [None]
  - Hypertension [None]
  - Blood thyroid stimulating hormone abnormal [None]
  - Pneumonia necrotising [None]
  - Palmar-plantar erythrodysaesthesia syndrome [None]
  - Muscle disorder [None]
  - Diarrhoea [None]

NARRATIVE: CASE EVENT DATE: 20141119
